FAERS Safety Report 20720007 (Version 2)
Quarter: 2022Q2

REPORT INFORMATION
  Report Type: Spontaneous
  Country: JP (occurrence: JP)
  Receive Date: 20220418
  Receipt Date: 20220613
  Transmission Date: 20220720
  Serious: Yes (Other)
  Sender: FDA-Public Use
  Company Number: JP-JNJFOC-20220431748

PATIENT

DRUGS (1)
  1. INVEGA [Suspect]
     Active Substance: PALIPERIDONE
     Indication: Product used for unknown indication
     Dosage: DOSE UNKNOWN
     Route: 048

REACTIONS (2)
  - Renal impairment [Unknown]
  - Oedema peripheral [Unknown]
